FAERS Safety Report 22208400 (Version 2)
Quarter: 2023Q2

REPORT INFORMATION
  Report Type: Spontaneous
  Country: US (occurrence: None)
  Receive Date: 20230413
  Receipt Date: 20230529
  Transmission Date: 20230721
  Serious: Yes (Other)
  Sender: FDA-Public Use
  Company Number: 2023A080971

PATIENT
  Age: 22602 Day
  Sex: Female

DRUGS (2)
  1. TEZSPIRE [Suspect]
     Active Substance: TEZEPELUMAB-EKKO
     Dosage: 210.0MG UNKNOWN
     Route: 058
     Dates: start: 202205
  2. FASENRA [Suspect]
     Active Substance: BENRALIZUMAB
     Dosage: 30.0MG UNKNOWN
     Route: 058
     Dates: end: 202205

REACTIONS (3)
  - Plasma cell myeloma [Unknown]
  - Upper limb fracture [Recovering/Resolving]
  - Immunoglobulins increased [Unknown]

NARRATIVE: CASE EVENT DATE: 20230405
